FAERS Safety Report 9157435 (Version 2)
Quarter: 2013Q3

REPORT INFORMATION
  Report Type: Spontaneous
  Country: US (occurrence: None)
  Receive Date: 20130308
  Receipt Date: 20130826
  Transmission Date: 20140515
  Serious: Yes (Death)
  Sender: FDA-Public Use
  Company Number: 1302-286

PATIENT
  Age: 91 Year
  Sex: Male

DRUGS (8)
  1. EYLEA (AFLIBERCEPT) (INJECTION) (AFLIBERCEPT) [Suspect]
     Indication: CHOROIDAL NEOVASCULARISATION
     Dosage: 1 IN 2 M, INTRAVITREAL
     Dates: start: 20120515
  2. TRAVATAN [Concomitant]
  3. PLAVIX [Concomitant]
  4. SPIRONOLACTONE [Concomitant]
  5. FUROSEMIDE [Concomitant]
  6. DIGOXIN [Concomitant]
  7. COZAAR [Concomitant]
  8. PRAVASTATIN [Concomitant]

REACTIONS (1)
  - Cardiac failure congestive [None]
